FAERS Safety Report 4660187-2 (Version None)
Quarter: 2005Q2

REPORT INFORMATION
  Report Type: 
  Country: None (occurrence: None)
  Receive Date: 20050419
  Receipt Date: 20040830
  Transmission Date: 20051028
  Serious: Yes (Hospitalization, Other)
  Sender: FDA-Public Use
  Company Number: 20040800389

PATIENT
  Age: 79 Year
  Sex: Female

DRUGS (5)
  1. HEPARIN [Suspect]
     Indication: DIALYSIS
     Dosage: 5300 UNITS ONCE IV
     Route: 042
     Dates: start: 20040827, end: 20040827
  2. HEPARIN [Suspect]
     Indication: DIALYSIS
     Dosage: 250 ONCE UNK
     Dates: start: 20040827, end: 20040827
  3. CALCITRIOL [Concomitant]
  4. EPOGEN [Concomitant]
  5. VENOFER [Concomitant]

REACTIONS (1)
  - HAEMORRHAGE [None]
